FAERS Safety Report 9474948 (Version 3)
Quarter: 2013Q4

REPORT INFORMATION
  Report Type: Report from Study
  Country: GB (occurrence: GB)
  Receive Date: 20130824
  Receipt Date: 20131118
  Transmission Date: 20140711
  Serious: Yes (Life-Threatening, Hospitalization)
  Sender: FDA-Public Use
  Company Number: GB-ROCHE-1264451

PATIENT
  Age: 58 Year
  Sex: Male

DRUGS (4)
  1. BEVACIZUMAB [Suspect]
     Indication: GASTRIC CANCER
     Dosage: MOST RECENT DOSE 870 MG ON 20/MAR/2013
     Route: 042
     Dates: start: 20130206
  2. CAPECITABINE [Suspect]
     Indication: GASTRIC CANCER
     Dosage: MOST RECENT DOSE 1800 MG ON 09/APR/2013
     Route: 048
     Dates: start: 20130206
  3. CISPLATIN [Suspect]
     Indication: GASTRIC CANCER
     Dosage: MOST RECENT DOSE 132 MG ON 20/MAR/2013
     Route: 042
     Dates: start: 20130206
  4. EPIRUBICIN [Suspect]
     Indication: GASTRIC CANCER
     Dosage: MOST RECENT DOSE 110 MG ON 20/MAR/2013
     Route: 042
     Dates: start: 20130206

REACTIONS (4)
  - Gastrointestinal fistula [Recovered/Resolved with Sequelae]
  - Anastomotic leak [Unknown]
  - Infection [Recovered/Resolved]
  - Sinus tachycardia [Recovered/Resolved]
